FAERS Safety Report 11423521 (Version 1)
Quarter: 2015Q3

REPORT INFORMATION
  Report Type: Spontaneous
  Country: US (occurrence: US)
  Receive Date: 20150827
  Receipt Date: 20150827
  Transmission Date: 20151125
  Serious: Yes (Other)
  Sender: FDA-Public Use
  Company Number: US-BAUSCH-BL-2015-020037

PATIENT
  Age: 59 Year
  Sex: Female
  Weight: 66.28 kg

DRUGS (13)
  1. NADOLOL. [Concomitant]
     Active Substance: NADOLOL
     Indication: HYPERTENSION
     Route: 048
     Dates: start: 2012
  2. XIFAXAN [Suspect]
     Active Substance: RIFAXIMIN
     Indication: AMNESIA
  3. XIFAXAN [Suspect]
     Active Substance: RIFAXIMIN
     Indication: HEPATIC CIRRHOSIS
     Route: 048
     Dates: start: 2015
  4. LACTULOSE. [Concomitant]
     Active Substance: LACTULOSE
     Indication: HEPATIC CIRRHOSIS
     Route: 048
     Dates: start: 201502
  5. XANAX [Concomitant]
     Active Substance: ALPRAZOLAM
     Indication: ANXIETY
     Route: 048
     Dates: start: 2010
  6. METFORMIN [Concomitant]
     Active Substance: METFORMIN HYDROCHLORIDE
     Indication: DIABETES MELLITUS
     Route: 048
  7. OXYBUTYNIN [Concomitant]
     Active Substance: OXYBUTYNIN
     Indication: STRESS URINARY INCONTINENCE
     Route: 048
     Dates: start: 2013
  8. DIOVAN [Concomitant]
     Active Substance: VALSARTAN
     Indication: HYPERTENSION
     Route: 048
     Dates: start: 2010
  9. ONDANSETRON [Concomitant]
     Active Substance: ONDANSETRON
     Indication: NAUSEA
     Dosage: 4MG AS NEEDED
     Route: 048
     Dates: start: 201502
  10. CRESTOR [Concomitant]
     Active Substance: ROSUVASTATIN CALCIUM
     Indication: BLOOD CHOLESTEROL INCREASED
     Route: 048
     Dates: start: 2005
  11. GLIPIZIDE. [Concomitant]
     Active Substance: GLIPIZIDE
     Indication: DIABETES MELLITUS
     Route: 048
  12. AMITRIPTYLINE [Concomitant]
     Active Substance: AMITRIPTYLINE
     Indication: MIGRAINE
     Route: 048
     Dates: start: 2000
  13. ACETAZOLAMIDE. [Concomitant]
     Active Substance: ACETAZOLAMIDE
     Indication: MIGRAINE
     Route: 048
     Dates: start: 2014

REACTIONS (3)
  - Ear infection [Not Recovered/Not Resolved]
  - Deafness transitory [Not Recovered/Not Resolved]
  - Exfoliative rash [Not Recovered/Not Resolved]

NARRATIVE: CASE EVENT DATE: 2015
